FAERS Safety Report 7483022-6 (Version None)
Quarter: 2011Q2

REPORT INFORMATION
  Report Type: 
  Country: None (occurrence: None)
  Receive Date: 20110516
  Receipt Date: 20090216
  Transmission Date: 20111010
  Serious: Yes (Other)
  Sender: FDA-Public Use
  Company Number: US-BAYER-200913104NA

PATIENT
  Age: 63 Year
  Sex: Male
  Weight: 102.5 kg

DRUGS (10)
  1. TRASYLOL [Suspect]
     Indication: CORONARY ARTERY BYPASS
     Dosage: 200CC THEN 50CC/HR
     Route: 042
     Dates: start: 20050714, end: 20050714
  2. ISOSORBIDE [ISOSORBIDE] [Concomitant]
     Dosage: 1 TAB DAILY
     Route: 048
  3. PLAVIX [Concomitant]
     Dosage: 75 MG DAILY
     Route: 048
  4. HEPARIN [Concomitant]
     Dosage: 33000 U, UNK
     Route: 042
     Dates: start: 20050714
  5. WARFARIN SODIUM [Concomitant]
     Indication: DEEP VEIN THROMBOSIS
     Dosage: 7.5 MG/ DAY
     Route: 048
  6. DILANTIN [Concomitant]
     Dosage: 100 MG DAILY
     Route: 048
  7. SPIRONOLACTONE [Concomitant]
     Dosage: 25 MG DAILY
  8. HUMULIN 70/30 [Concomitant]
     Dosage: 20 UNITS BID
  9. LIPITOR [Concomitant]
     Dosage: 40 MG DAILY
     Route: 048
  10. COREG [Concomitant]
     Dosage: 6.25 DAILY

REACTIONS (9)
  - PAIN [None]
  - ANXIETY [None]
  - INJURY [None]
  - DEPRESSION [None]
  - FEAR [None]
  - ANHEDONIA [None]
  - STRESS [None]
  - RENAL FAILURE [None]
  - UNEVALUABLE EVENT [None]
